FAERS Safety Report 16141256 (Version 1)
Quarter: 2019Q2

REPORT INFORMATION
  Report Type: Spontaneous
  Country: US (occurrence: US)
  Receive Date: 20190401
  Receipt Date: 20190401
  Transmission Date: 20190711
  Serious: No
  Sender: FDA-Public Use
  Company Number: US-PFIZER INC-2019136463

PATIENT
  Age: 76 Year
  Sex: Male
  Weight: 96.62 kg

DRUGS (3)
  1. ALPRAZOLAM. [Suspect]
     Active Substance: ALPRAZOLAM
     Indication: PAIN
     Dosage: 0.5 TABLET, 2X/DAY(0.5MG IN MORNING AND 0.5MG AT NIGHT)
     Route: 048
  2. ALPRAZOLAM. [Suspect]
     Active Substance: ALPRAZOLAM
     Indication: ANXIETY
  3. DULOXETINE. [Concomitant]
     Active Substance: DULOXETINE
     Dosage: UNK

REACTIONS (2)
  - Confusional state [Unknown]
  - Intentional product use issue [Unknown]
